FAERS Safety Report 25739272 (Version 1)
Quarter: 2025Q3

REPORT INFORMATION
  Report Type: Spontaneous
  Country: GB (occurrence: GB)
  Receive Date: 20250829
  Receipt Date: 20250829
  Transmission Date: 20251021
  Serious: Yes (Hospitalization, Other)
  Sender: HIKMA
  Company Number: None

PATIENT
  Age: 63 Year
  Sex: Female

DRUGS (4)
  1. IRINOTECAN [Suspect]
     Active Substance: IRINOTECAN
     Indication: Product used for unknown indication
     Route: 065
     Dates: start: 20250812
  2. ATROPINE [Concomitant]
     Active Substance: ATROPINE
     Indication: Premedication
     Route: 065
  3. DEXAMETHASONE [Concomitant]
     Active Substance: DEXAMETHASONE
     Indication: Premedication
     Route: 065
  4. ONDANSETRON [Concomitant]
     Active Substance: ONDANSETRON
     Indication: Premedication
     Route: 065

REACTIONS (6)
  - Vision blurred [Recovered/Resolved]
  - Blepharospasm [Recovered/Resolved]
  - Tongue movement disturbance [Recovered/Resolved]
  - Dysarthria [Recovered/Resolved]
  - Cholinergic syndrome [Recovered/Resolved]
  - Feeling abnormal [Recovered/Resolved]

NARRATIVE: CASE EVENT DATE: 20250812
